FAERS Safety Report 6780459-5 (Version None)
Quarter: 2010Q2

REPORT INFORMATION
  Report Type: 
  Country: None (occurrence: None)
  Receive Date: 20100621
  Receipt Date: 20100611
  Transmission Date: 20101027
  Serious: Yes (Hospitalization)
  Sender: FDA-Public Use
  Company Number: 2007BI027335

PATIENT
  Age: 64 Year
  Sex: Male

DRUGS (2)
  1. AVONEX [Suspect]
     Indication: MULTIPLE SCLEROSIS
     Route: 030
     Dates: start: 20020329, end: 20030101
  2. AVONEX [Suspect]
     Route: 030
     Dates: start: 20030101

REACTIONS (11)
  - ATRIOVENTRICULAR BLOCK COMPLETE [None]
  - CARDIOGENIC SHOCK [None]
  - CORONARY ARTERY OCCLUSION [None]
  - DEPRESSED MOOD [None]
  - ECHOCARDIOGRAM ABNORMAL [None]
  - EMBOLISM [None]
  - INFLUENZA LIKE ILLNESS [None]
  - INJECTION SITE PAIN [None]
  - MYOCARDIAL INFARCTION [None]
  - RENAL FAILURE [None]
  - VENTRICULAR TACHYCARDIA [None]
